FAERS Safety Report 5890978-1 (Version None)
Quarter: 2008Q3

REPORT INFORMATION
  Report Type: 
  Country: None (occurrence: None)
  Receive Date: 20080922
  Receipt Date: 20080912
  Transmission Date: 20090109
  Serious: Yes (Other)
  Sender: FDA-Public Use
  Company Number: A0748624A

PATIENT
  Age: 55 Year
  Sex: Male
  Weight: 118.2 kg

DRUGS (4)
  1. AVANDIA [Suspect]
     Dosage: 8MG PER DAY
     Route: 048
     Dates: start: 19990101, end: 20060101
  2. GLUCOPHAGE [Concomitant]
     Dosage: 100MG TWICE PER DAY
     Dates: start: 20050101
  3. NITROGLYCERIN [Concomitant]
  4. METOPROLOL TARTRATE [Concomitant]

REACTIONS (1)
  - CEREBROVASCULAR ACCIDENT [None]
